FAERS Safety Report 6508332-8 (Version None)
Quarter: 2009Q4

REPORT INFORMATION
  Report Type: 
  Country: None (occurrence: None)
  Receive Date: 20091221
  Receipt Date: 20081223
  Transmission Date: 20100525
  Serious: No
  Sender: FDA-Public Use
  Company Number: US-ASTRAZENECA-2008UW19075

PATIENT
  Age: 86 Year
  Sex: Female
  Weight: 86.2 kg

DRUGS (4)
  1. CRESTOR [Suspect]
     Indication: BLOOD CHOLESTEROL INCREASED
     Route: 048
     Dates: start: 20080908
  2. WARFARIN SODIUM [Concomitant]
  3. ATENOLOL [Concomitant]
  4. AMLODIPINE [Concomitant]

REACTIONS (1)
  - HYPERHIDROSIS [None]
